FAERS Safety Report 8364230-9 (Version None)
Quarter: 2012Q2

REPORT INFORMATION
  Report Type: 
  Country: None (occurrence: None)
  Receive Date: 20120516
  Receipt Date: 20120507
  Transmission Date: 20120825
  Serious: Yes (Hospitalization)
  Sender: FDA-Public Use
  Company Number: PHHY2011VE110984

PATIENT
  Sex: Female

DRUGS (9)
  1. GLUCOSAMINE [Concomitant]
     Indication: OSTEOPOROSIS
     Dosage: 1.5 MG, ONCE/SINGLE
     Route: 048
     Dates: start: 20110601
  2. TOFRANIL [Concomitant]
     Indication: ANTIDEPRESSANT THERAPY
     Dosage: 10 MG, ONCE/SINGLE
     Route: 048
     Dates: start: 20111101
  3. PREMARIN [Concomitant]
     Indication: VULVOVAGINAL DISCOMFORT
     Dosage: 0.625 MG, ONCE/SINGLE
     Route: 061
     Dates: start: 20120401
  4. ZOLEDRONOC ACID [Suspect]
     Indication: OSTEOPOROSIS
     Dosage: 5MG/ IV ROUTE ONCE A YEAR
     Route: 042
     Dates: start: 20080225
  5. ZOLEDRONOC ACID [Suspect]
     Dosage: 5MG/ IV ROUTE ONCE A YEAR
     Route: 042
     Dates: start: 20090612
  6. OXYBUTYNIN [Concomitant]
     Indication: INCONTINENCE
     Dosage: 10 MG, ONCE/SINGLE
     Dates: start: 20111101
  7. DECA-DURABOLIN [Concomitant]
     Dosage: 25 MG, EACH 4 MONTHS
     Route: 030
     Dates: start: 20110101
  8. ZOLEDRONOC ACID [Suspect]
     Dosage: 5MG/ IV ROUTE ONCE A YEAR
     Route: 042
     Dates: start: 20100607
  9. ZOLEDRONOC ACID [Suspect]
     Dosage: 5MG/ IV ROUTE ONCE A YEAR
     Route: 042
     Dates: start: 20110606

REACTIONS (4)
  - VULVOVAGINAL DISCOMFORT [None]
  - RECTOCELE [None]
  - INCONTINENCE [None]
  - CYSTOCELE [None]
